FAERS Safety Report 10209428 (Version 3)
Quarter: 2014Q2

REPORT INFORMATION
  Report Type: Spontaneous
  Country: US (occurrence: US)
  Receive Date: 20140601
  Receipt Date: 20140626
  Transmission Date: 20141212
  Serious: No
  Sender: FDA-Public Use
  Company Number: US-TEVA-485582USA

PATIENT
  Age: 34 Year
  Sex: Female
  Weight: 75.82 kg

DRUGS (4)
  1. PLAN B ONE-STEP [Suspect]
     Indication: POST COITAL CONTRACEPTION
     Dosage: 1.5 MILLIGRAM DAILY;
     Route: 048
     Dates: start: 20140521, end: 20140521
  2. PLAN B ONE-STEP [Suspect]
     Dosage: 1.5 MILLIGRAM DAILY;
     Route: 048
     Dates: start: 20140522, end: 20140522
  3. ORSYTHIA [Concomitant]
     Indication: CONTRACEPTION
  4. PROVENTIL [Concomitant]
     Indication: ASTHMA

REACTIONS (7)
  - Diarrhoea [Recovered/Resolved]
  - Chills [Recovered/Resolved]
  - Cold sweat [Recovered/Resolved]
  - Expired product administered [Unknown]
  - Inappropriate schedule of drug administration [Unknown]
  - Nausea [Recovered/Resolved]
  - Menstruation irregular [Recovered/Resolved]
